FAERS Safety Report 4682842-0 (Version None)
Quarter: 2005Q2

REPORT INFORMATION
  Report Type: 
  Country: None (occurrence: None)
  Receive Date: 20050602
  Receipt Date: 20050426
  Transmission Date: 20051028
  Serious: No
  Sender: FDA-Public Use
  Company Number: USA050496415

PATIENT
  Age: 66 Year
  Sex: Male

DRUGS (2)
  1. CYMBALTA [Suspect]
     Dosage: 60 MG
     Dates: start: 20050101
  2. COD-LIVER OIL [Concomitant]

REACTIONS (1)
  - BLOOD PRESSURE INCREASED [None]
